FAERS Safety Report 8136806-5 (Version None)
Quarter: 2012Q1

REPORT INFORMATION
  Report Type: 
  Country: None (occurrence: None)
  Receive Date: 20120214
  Receipt Date: 20120210
  Transmission Date: 20120608
  Serious: Yes (Hospitalization)
  Sender: FDA-Public Use
  Company Number: JP-ABBOTT-11P-087-0856742-00

PATIENT
  Sex: Female
  Weight: 59.3 kg

DRUGS (23)
  1. ALFACALCIDOL [Concomitant]
     Indication: OSTEOPOROSIS
     Route: 048
     Dates: start: 20040816
  2. METHOTREXATE [Suspect]
     Dates: start: 19910101
  3. AMLODIPINE BESYLATE [Concomitant]
     Indication: PRODUCT USED FOR UNKNOWN INDICATION
     Route: 048
  4. INDOMETACIN FARNESIL [Concomitant]
     Indication: RHEUMATOID ARTHRITIS
     Route: 048
     Dates: start: 20080324
  5. MECOBALAMIN [Concomitant]
     Indication: SCIATICA
     Route: 048
     Dates: start: 20080816
  6. TOCOPHERYL NICOTINATE [Concomitant]
     Indication: SCIATICA
     Route: 048
     Dates: start: 20040816
  7. TOCOPHERYL NICOTINATE [Concomitant]
     Dosage: DOSE FOR 30 DAYS
     Dates: start: 20110310
  8. INDOMETACIN FARNESIL [Concomitant]
     Dosage: DOSE FOR 30 DAYS
     Dates: start: 20110310
  9. FAMOTIDINE [Concomitant]
     Indication: GASTRITIS PROPHYLAXIS
     Route: 048
     Dates: start: 20040816
  10. DICLOFENAC SODIUM [Concomitant]
     Indication: PRODUCT USED FOR UNKNOWN INDICATION
  11. ADALIMUMAB [Suspect]
     Indication: RHEUMATOID ARTHRITIS
     Dates: start: 20090827, end: 20110310
  12. METHOTREXATE [Suspect]
     Dosage: 1 OR 2 TABS PER WEEK, 2-4 MG
     Dates: start: 19980101
  13. CANDESARTAN CILEXETIL [Concomitant]
     Indication: PRODUCT USED FOR UNKNOWN INDICATION
     Route: 048
  14. ALFACALCIDOL [Concomitant]
     Dosage: DOSE FOR 30 DAYS
     Dates: start: 20110310
  15. NSAID'S [Concomitant]
     Indication: RHEUMATOID ARTHRITIS
     Dates: start: 19910101
  16. METHOTREXATE [Suspect]
     Indication: RHEUMATOID ARTHRITIS
     Dosage: DOSE FOR 30 DAYS
     Dates: start: 20110310
  17. FAMOTIDINE [Concomitant]
     Dosage: DOSE FOR 30 DAYS
     Dates: start: 20110310
  18. REBAMIPIDE [Concomitant]
     Dosage: DOSE FOR 30 DAYS
     Dates: start: 20110310
  19. METHOTREXATE [Suspect]
     Route: 048
     Dates: start: 20040816
  20. BROTIZOLAM [Concomitant]
     Indication: PRODUCT USED FOR UNKNOWN INDICATION
     Route: 048
  21. MECOBALAMIN [Concomitant]
     Dosage: DOSE FOR 30 DAYS
     Dates: start: 20110310
  22. REBAMIPIDE [Concomitant]
     Indication: GASTRITIS PROPHYLAXIS
     Route: 048
     Dates: start: 20040816
  23. LOXOPROFEN [Concomitant]
     Indication: PRODUCT USED FOR UNKNOWN INDICATION

REACTIONS (3)
  - PNEUMONIA [None]
  - PERITONEAL TUBERCULOSIS [None]
  - TUBERCULOUS PLEURISY [None]
